FAERS Safety Report 9199930 (Version 1)
Quarter: 2013Q1

REPORT INFORMATION
  Report Type: Spontaneous
  Country: BR (occurrence: BR)
  Receive Date: 20130329
  Receipt Date: 20130329
  Transmission Date: 20140127
  Serious: Yes (Other)
  Sender: FDA-Public Use
  Company Number: BR-SANOFI-AVENTIS-2013SA030682

PATIENT
  Sex: Female
  Weight: 2.39 kg

DRUGS (1)
  1. CLEXANE [Suspect]
     Indication: FOETAL EXPOSURE TIMING UNSPECIFIED
     Route: 065

REACTIONS (1)
  - Foetal heart rate disorder [Recovered/Resolved]
